FAERS Safety Report 21640360 (Version 4)
Quarter: 2023Q1

REPORT INFORMATION
  Report Type: Spontaneous
  Country: US (occurrence: US)
  Receive Date: 20221124
  Receipt Date: 20230119
  Transmission Date: 20230418
  Serious: No
  Sender: FDA-Public Use
  Company Number: US-JNJFOC-20221140428

PATIENT
  Sex: Male

DRUGS (1)
  1. INVOKANA [Suspect]
     Active Substance: CANAGLIFLOZIN
     Indication: Glucose tolerance impaired
     Route: 048
     Dates: start: 20221019

REACTIONS (2)
  - Glomerular filtration rate decreased [Unknown]
  - Off label use [Unknown]
